FAERS Safety Report 19940884 (Version 2)
Quarter: 2021Q4

REPORT INFORMATION
  Report Type: Spontaneous
  Country: GD (occurrence: GD)
  Receive Date: 20211012
  Receipt Date: 20211029
  Transmission Date: 20220303
  Serious: Yes (Life-Threatening, Hospitalization, Other)
  Sender: FDA-Public Use
  Company Number: US-MACLEODS PHARMACEUTICALS US LTD-MAC2021032904

PATIENT

DRUGS (3)
  1. LIDOCAINE [Suspect]
     Active Substance: LIDOCAINE
     Indication: Epidural anaesthesia
     Dosage: 16 MILLILITER (2%), BOLUS
     Route: 008
  2. EPINEPHRINE [Concomitant]
     Active Substance: EPINEPHRINE
     Indication: Product used for unknown indication
     Dosage: 16 ML 2% LIDOCAINE WITH EPINEPHRINE
     Route: 008
  3. METHERGINE [Concomitant]
     Active Substance: METHYLERGONOVINE MALEATE
     Indication: Uterine atony
     Dosage: 0.2 MILLIGRAM
     Route: 030

REACTIONS (8)
  - Pneumocephalus [Recovered/Resolved]
  - Horner^s syndrome [Recovered/Resolved]
  - Loss of consciousness [Recovered/Resolved]
  - Amnesia [Recovered/Resolved]
  - Unresponsive to stimuli [Recovered/Resolved]
  - Eclampsia [Recovered/Resolved]
  - Oxygen saturation decreased [Recovered/Resolved]
  - Maternal exposure during pregnancy [Unknown]
